FAERS Safety Report 26198340 (Version 1)
Quarter: 2025Q4

REPORT INFORMATION
  Report Type: Report from Study
  Country: US (occurrence: US)
  Receive Date: 20251224
  Receipt Date: 20251224
  Transmission Date: 20260118
  Serious: Yes (Hospitalization, Other)
  Sender: PFIZER
  Company Number: US-PFIZER INC-202500248196

PATIENT
  Age: 61 Year
  Sex: Male

DRUGS (2)
  1. BRAFTOVI [Suspect]
     Active Substance: ENCORAFENIB
     Indication: Malignant melanoma
     Dosage: 75MG CAP; 450MG DAILY
     Route: 048
  2. MEKTOVI [Suspect]
     Active Substance: BINIMETINIB
     Indication: Malignant melanoma
     Dosage: 15MG TAB; 45MG ORALLY TWICE A DAY
     Route: 048

REACTIONS (10)
  - Pneumonia [Unknown]
  - Neuropathy peripheral [Unknown]
  - Illness [Unknown]
  - Immune system disorder [Unknown]
  - Confusional state [Unknown]
  - Nausea [Not Recovered/Not Resolved]
  - COVID-19 [Unknown]
  - Hypoaesthesia [Unknown]
  - Pain [Unknown]
  - Intentional product misuse [Unknown]

NARRATIVE: CASE EVENT DATE: 20250101
